FAERS Safety Report 8964105 (Version 1)
Quarter: 2012Q4

REPORT INFORMATION
  Report Type: 
  Country: CA (occurrence: CA)
  Receive Date: 20121213
  Receipt Date: 20121213
  Transmission Date: 20130627
  Serious: Yes (Hospitalization)
  Sender: FDA-Public Use
  Company Number: CA-B.I. PHARMACEUTICALS,INC./RIDGEFIELD-2012-CN-02519CN

PATIENT
  Age: 79 Year
  Sex: Female

DRUGS (3)
  1. PRADAX [Suspect]
     Indication: ATRIAL FIBRILLATION
     Dosage: 220 mg
  2. PANTOLOC [Concomitant]
  3. MEDICATION NOT FURTHER SPECIFIED [Concomitant]

REACTIONS (4)
  - Dyspnoea [Recovered/Resolved]
  - Dyspnoea at rest [Recovered/Resolved]
  - Anaemia [Recovered/Resolved]
  - Gastrointestinal haemorrhage [Recovered/Resolved]
